FAERS Safety Report 18516376 (Version 1)
Quarter: 2020Q4

REPORT INFORMATION
  Report Type: Spontaneous
  Country: FR (occurrence: FR)
  Receive Date: 20201118
  Receipt Date: 20201118
  Transmission Date: 20210114
  Serious: Yes (Hospitalization)
  Sender: FDA-Public Use
  Company Number: FR-JNJFOC-20201117678

PATIENT
  Age: 12 Year
  Sex: Male
  Weight: 45.5 kg

DRUGS (1)
  1. RISPERDAL [Suspect]
     Active Substance: RISPERIDONE
     Indication: ATTENTION DEFICIT HYPERACTIVITY DISORDER
     Dosage: ; IN TOTAL
     Route: 048
     Dates: start: 20200130, end: 20200130

REACTIONS (4)
  - Apathy [Recovered/Resolved]
  - Somnolence [Recovered/Resolved]
  - Incorrect dose administered [Unknown]
  - Tachycardia [Recovered/Resolved]

NARRATIVE: CASE EVENT DATE: 20200130
